FAERS Safety Report 11189339 (Version 1)
Quarter: 2015Q2

REPORT INFORMATION
  Report Type: Report from Study
  Country: US (occurrence: None)
  Receive Date: 20150603
  Receipt Date: 20150603
  Transmission Date: 20150821
  Serious: No
  Sender: FDA-Public Use
  Company Number: 2015TASUS000724

PATIENT
  Age: 41 Year
  Sex: Male
  Weight: 129.3 kg

DRUGS (7)
  1. DIZAEPAM (DIAZEPAM) [Concomitant]
  2. METFORMIN [Concomitant]
     Active Substance: METFORMIN HYDROCHLORIDE
  3. SIMVASTATIN (SIMVASTATIN) [Concomitant]
     Active Substance: SIMVASTATIN
  4. HETLIOZ [Suspect]
     Active Substance: TASIMELTEON
     Indication: CIRCADIAN RHYTHM SLEEP DISORDER
     Route: 048
     Dates: start: 20150311
  5. LOSARTAN (LOSARTAN POTASSIUM) [Concomitant]
  6. GLIMEPIRIDE (GLIMEPIRIDE) [Concomitant]
     Active Substance: GLIMEPIRIDE
  7. PRILOSEC (OMEPRAZOLE) [Concomitant]
     Active Substance: OMEPRAZOLE MAGNESIUM

REACTIONS (4)
  - Depression [None]
  - Nightmare [None]
  - Abnormal dreams [None]
  - Blood glucose increased [None]

NARRATIVE: CASE EVENT DATE: 201503
